FAERS Safety Report 6092807-2 (Version None)
Quarter: 2009Q1

REPORT INFORMATION
  Report Type: 
  Country: None (occurrence: None)
  Receive Date: 20090225
  Receipt Date: 20090216
  Transmission Date: 20090719
  Serious: Yes (Death)
  Sender: FDA-Public Use
  Company Number: DE-ROCHE-615362

PATIENT

DRUGS (3)
  1. CAPECITABINE [Suspect]
     Dosage: ON DAYS 1-14, EVERY 3 WEEKS
     Route: 065
  2. BEVACIZUMAB [Suspect]
     Dosage: ON DAY 1, EVERY 3 WEEKS
     Route: 065
  3. IRINOTECAN HCL [Suspect]
     Dosage: ON DAY 1, EVERY 3 WEEKS
     Route: 065

REACTIONS (1)
  - DEATH [None]
